FAERS Safety Report 8043718 (Version 2)
Quarter: 2012Q4

REPORT INFORMATION
  Report Type: 
  Country: US (occurrence: US)
  Receive Date: 20110719
  Receipt Date: 20121121
  Transmission Date: 20130627
  Serious: Yes (Death, Hospitalization)
  Sender: FDA-Public Use
  Company Number: US-GLAXOSMITHKLINE-A0909695A

PATIENT
  Age: 38 Year
  Sex: Male

DRUGS (7)
  1. AVANDIA [Suspect]
     Indication: TYPE 2 DIABETES MELLITUS
     Route: 048
     Dates: start: 20000402, end: 20070416
  2. AVANDAMET [Suspect]
     Indication: DIABETES MELLITUS
     Route: 048
     Dates: start: 20000402, end: 20070416
  3. VASOTEC [Concomitant]
  4. CARDURA [Concomitant]
  5. JANUVIA [Concomitant]
  6. ZOCOR [Concomitant]
  7. LASIX [Concomitant]

REACTIONS (2)
  - Sudden cardiac death [Fatal]
  - Cardiac failure congestive [Unknown]
